FAERS Safety Report 6585843-0 (Version None)
Quarter: 2010Q1

REPORT INFORMATION
  Report Type: 
  Country: None (occurrence: None)
  Receive Date: 20100217
  Receipt Date: 20100203
  Transmission Date: 20100710
  Serious: Yes (Hospitalization, Other)
  Sender: FDA-Public Use
  Company Number: PHHY2010DE03125

PATIENT
  Sex: Female
  Weight: 84 kg

DRUGS (3)
  1. ALISKIREN ALI+ [Suspect]
     Indication: HYPERTENSION
     Dosage: 150 MG DAILY
     Dates: start: 20090119
  2. PENTAERYTHRITOL TETRANITRATE [Concomitant]
     Indication: MYOCARDIAL ISCHAEMIA
     Dosage: 2 DF DAILY
     Route: 048
     Dates: start: 20080902
  3. TRIAMPUR COMPOSITUM [Concomitant]
     Indication: HYPERTENSION
     Dosage: 1 DF DAILY
     Route: 048
     Dates: start: 20060619

REACTIONS (19)
  - AORTIC ARTERIOSCLEROSIS [None]
  - ATRIAL FIBRILLATION [None]
  - BIFASCICULAR BLOCK [None]
  - BLOOD CREATININE INCREASED [None]
  - BLOOD PRESSURE INCREASED [None]
  - BRADYCARDIA [None]
  - CONGESTIVE CARDIOMYOPATHY [None]
  - DIZZINESS [None]
  - DYSPNOEA [None]
  - ELECTROCARDIOGRAM ABNORMAL [None]
  - HEART RATE INCREASED [None]
  - LEFT VENTRICULAR HYPERTROPHY [None]
  - LUNG DISORDER [None]
  - MITRAL VALVE INCOMPETENCE [None]
  - PALPITATIONS [None]
  - TACHYARRHYTHMIA [None]
  - TACHYCARDIA [None]
  - TRICUSPID VALVE INCOMPETENCE [None]
  - VENTRICULAR EXTRASYSTOLES [None]
